FAERS Safety Report 6056115-8 (Version None)
Quarter: 2009Q1

REPORT INFORMATION
  Report Type: 
  Country: None (occurrence: None)
  Receive Date: 20090128
  Receipt Date: 20090116
  Transmission Date: 20090719
  Serious: Yes (Other)
  Sender: FDA-Public Use
  Company Number: US-ELI_LILLY_AND_COMPANY-US200801001080

PATIENT
  Sex: Female
  Weight: 86.168 kg

DRUGS (16)
  1. OLANZAPINE [Suspect]
     Indication: BIPOLAR DISORDER
     Dosage: 10 MG, 2/D
     Dates: start: 19960101
  2. GLIPIZIDE [Concomitant]
  3. TEMAZEPAM [Concomitant]
  4. HYZAAR [Concomitant]
     Indication: HYPERTENSION
  5. SIMVASTATIN [Concomitant]
     Indication: HYPERCHOLESTEROLAEMIA
  6. METFORMIN HCL [Concomitant]
  7. AROMASIN [Concomitant]
     Indication: BREAST CANCER
  8. PREDNISONE [Concomitant]
  9. FLOVENT [Concomitant]
  10. FOSAMAX [Concomitant]
  11. LUMIGAN [Concomitant]
     Route: 047
  12. ALBUTEROL SULATE [Concomitant]
  13. ASPIRIN [Concomitant]
  14. CALCIUM [Concomitant]
  15. VITAMIN D [Concomitant]
  16. GABAPENTIN [Concomitant]
     Indication: NERVE INJURY

REACTIONS (17)
  - ARTHRITIS [None]
  - ARTHROPATHY [None]
  - ASTHMA [None]
  - BREAST CANCER [None]
  - DIPLOPIA [None]
  - GAIT DISTURBANCE [None]
  - HYPERCHOLESTEROLAEMIA [None]
  - HYPERTENSION [None]
  - MYALGIA [None]
  - MYASTHENIA GRAVIS [None]
  - NERVE INJURY [None]
  - NEUROPATHY PERIPHERAL [None]
  - OSTEOPOROSIS [None]
  - PARAESTHESIA [None]
  - SPINAL CORD COMPRESSION [None]
  - TYPE 2 DIABETES MELLITUS [None]
  - WEIGHT INCREASED [None]
